FAERS Safety Report 11597302 (Version 1)
Quarter: 2015Q4

REPORT INFORMATION
  Report Type: Spontaneous
  Country: US (occurrence: US)
  Receive Date: 20151006
  Receipt Date: 20151006
  Transmission Date: 20160304
  Serious: No
  Sender: FDA-Public Use
  Company Number: US-AMGEN-USASP2014083733

PATIENT
  Age: 60 Year
  Sex: Male

DRUGS (5)
  1. DEGARELIX [Concomitant]
     Active Substance: DEGARELIX
  2. PROLIA [Suspect]
     Active Substance: DENOSUMAB
     Indication: PRODUCT USED FOR UNKNOWN INDICATION
     Dosage: 60 MG, Q4WK
     Route: 065
     Dates: start: 201402
  3. VITAMIN D                          /00107901/ [Concomitant]
     Active Substance: ERGOCALCIFEROL
  4. XGEVA [Suspect]
     Active Substance: DENOSUMAB
     Indication: PROSTATE CANCER METASTATIC
     Dosage: UNK
     Route: 065
     Dates: start: 201104
  5. CASODEX [Suspect]
     Active Substance: BICALUTAMIDE
     Dosage: UNK
     Dates: start: 201302

REACTIONS (2)
  - Breast enlargement [Unknown]
  - Inappropriate schedule of drug administration [Unknown]
